FAERS Safety Report 6369976-X (Version None)
Quarter: 2009Q3

REPORT INFORMATION
  Report Type: 
  Country: None (occurrence: None)
  Receive Date: 20090923
  Receipt Date: 20070522
  Transmission Date: 20100115
  Serious: No
  Sender: FDA-Public Use
  Company Number: US-ASTRAZENECA-2006UW08237

PATIENT
  Age: 59 Year
  Sex: Male
  Weight: 88.5 kg

DRUGS (16)
  1. SEROQUEL [Suspect]
     Indication: POST-TRAUMATIC STRESS DISORDER
     Dosage: 25-400 MG
     Route: 048
     Dates: start: 20050328
  2. SEROQUEL [Suspect]
     Indication: DEPRESSION
     Dosage: 25-400 MG
     Route: 048
     Dates: start: 20050328
  3. ZYPREXA [Suspect]
  4. LANTUS [Concomitant]
  5. NOVOLOG [Concomitant]
  6. AVANDIA [Concomitant]
  7. GEMFIBROZIL [Concomitant]
  8. ASPIRIN [Concomitant]
  9. NIASPAN [Concomitant]
  10. AVAPRO [Concomitant]
  11. LOSARTAN [Concomitant]
  12. MIRTAZAPINE [Concomitant]
  13. TRAMADOL HCL [Concomitant]
  14. TRIAMCINOLONE [Concomitant]
  15. VERAPAMIL [Concomitant]
  16. OMEPRAZOLE [Concomitant]

REACTIONS (5)
  - DIABETES MELLITUS [None]
  - HIATUS HERNIA [None]
  - NEUROPATHY PERIPHERAL [None]
  - RHINITIS ALLERGIC [None]
  - SLEEP APNOEA SYNDROME [None]
